FAERS Safety Report 4955580-4 (Version None)
Quarter: 2006Q1

REPORT INFORMATION
  Report Type: 
  Country: None (occurrence: None)
  Receive Date: 20060323
  Receipt Date: 20060315
  Transmission Date: 20060701
  Serious: Yes (Hospitalization)
  Sender: FDA-Public Use
  Company Number: 2006-03-0894

PATIENT
  Age: 5 Day
  Sex: Female

DRUGS (2)
  1. AERIUS                       (DESLORATADINE) [Suspect]
     Indication: ASTHMA
     Dosage: ORAL
     Route: 063
  2. FORADIL [Suspect]
     Dosage: ORAL
     Route: 063

REACTIONS (4)
  - DRUG EXPOSURE DURING PREGNANCY [None]
  - DRUG EXPOSURE VIA BREAST MILK [None]
  - FEEDING DISORDER NEONATAL [None]
  - HYPOTONIA NEONATAL [None]
